FAERS Safety Report 11782481 (Version 1)
Quarter: 2015Q4

REPORT INFORMATION
  Report Type: Spontaneous
  Country: SI (occurrence: SI)
  Receive Date: 20151127
  Receipt Date: 20151127
  Transmission Date: 20160305
  Serious: Yes (Hospitalization, Other)
  Sender: FDA-Public Use
  Company Number: SI-AMGEN-SVNSP2015123956

PATIENT
  Age: 60 Year
  Sex: Male

DRUGS (7)
  1. ADALAT [Concomitant]
     Active Substance: NIFEDIPINE
  2. AMARYL [Concomitant]
     Active Substance: GLIMEPIRIDE
     Indication: DIABETES MELLITUS
  3. LASIX [Concomitant]
     Active Substance: FUROSEMIDE
     Indication: RENAL FAILURE
  4. MEDROL [Concomitant]
     Active Substance: METHYLPREDNISOLONE
     Indication: IMMUNE THROMBOCYTOPENIC PURPURA
     Dosage: 16 MG, UNK
     Dates: start: 2003
  5. SANDIMMUN [Concomitant]
     Active Substance: CYCLOSPORINE
     Indication: IMMUNE THROMBOCYTOPENIC PURPURA
     Dosage: UNK
     Route: 048
     Dates: start: 2003
  6. NAKLOFEN                           /00372302/ [Concomitant]
  7. NPLATE [Suspect]
     Active Substance: ROMIPLOSTIM
     Indication: IMMUNE THROMBOCYTOPENIC PURPURA
     Dosage: 0.2 ML (1 MCG/KG), UNK
     Route: 065
     Dates: start: 20130131

REACTIONS (7)
  - Chronic kidney disease [Unknown]
  - Bundle branch block left [Unknown]
  - Dyspnoea [Unknown]
  - Thrombocytopenia [Unknown]
  - Hypovolaemia [Unknown]
  - Stenosis [Unknown]
  - Chest pain [Unknown]

NARRATIVE: CASE EVENT DATE: 201304
